FAERS Safety Report 24061504 (Version 1)
Quarter: 2024Q3

REPORT INFORMATION
  Report Type: Spontaneous
  Country: US (occurrence: None)
  Receive Date: 20240706
  Receipt Date: 20240706
  Transmission Date: 20241016
  Serious: Yes (Hospitalization)
  Sender: Public
  Company Number: None

PATIENT
  Age: 68 Year
  Sex: Female
  Weight: 91.35 kg

DRUGS (8)
  1. OZEMPIC [Suspect]
     Active Substance: SEMAGLUTIDE
     Indication: Type 2 diabetes mellitus
     Dosage: 1 OUNCE   ONCE A WEEK SUBCUTANEOUS
     Route: 058
     Dates: start: 20230102, end: 20240701
  2. TRESIBA [Concomitant]
  3. MONTELUKAST [Concomitant]
     Active Substance: MONTELUKAST SODIUM
  4. FAMOTIDINE [Concomitant]
     Active Substance: FAMOTIDINE
  5. METFORMIN HYDROCHLORIDE [Concomitant]
     Active Substance: METFORMIN HYDROCHLORIDE
  6. SERTRALINE HYDROCHLORIDE [Concomitant]
     Active Substance: SERTRALINE HYDROCHLORIDE
  7. atorvastatim [Concomitant]
  8. VITAMIN B [Concomitant]
     Active Substance: VITAMIN B

REACTIONS (3)
  - Headache [None]
  - Visual impairment [None]
  - Ocular ischaemic syndrome [None]

NARRATIVE: CASE EVENT DATE: 20230701
